FAERS Safety Report 4709312-5 (Version None)
Quarter: 2005Q3

REPORT INFORMATION
  Report Type: 
  Country: None (occurrence: None)
  Receive Date: 20050706
  Receipt Date: 20050622
  Transmission Date: 20060218
  Serious: Yes (Death)
  Sender: FDA-Public Use
  Company Number: 2005JP001305

PATIENT
  Age: 50 Year
  Sex: Male

DRUGS (4)
  1. PROGRAF [Suspect]
     Indication: RENAL TRANSPLANT
     Dosage: IV NOS
     Route: 042
     Dates: start: 20050610, end: 20050614
  2. SIMULECT [Concomitant]
  3. CELLCEPT [Concomitant]
  4. SOLU-MEDROL [Concomitant]

REACTIONS (1)
  - MYOCARDIAL INFARCTION [None]
